FAERS Safety Report 5890863-5 (Version None)
Quarter: 2008Q3

REPORT INFORMATION
  Report Type: 
  Country: None (occurrence: None)
  Receive Date: 20080917
  Receipt Date: 20080917
  Transmission Date: 20090109
  Serious: Yes (Other)
  Sender: FDA-Public Use
  Company Number: None

PATIENT
  Age: 44 Year
  Sex: Female
  Weight: 71.4 kg

DRUGS (3)
  1. GENTAMICIN [Suspect]
     Indication: EYE INFECTION BACTERIAL
     Dosage: 2 DROPS -0.2 ML- 2-4 TIMES DAILY TOPICALLY
     Route: 061
     Dates: start: 20060930, end: 20061001
  2. GENTAMICIN [Suspect]
     Indication: EYE INFECTION BACTERIAL
     Dosage: 2 DROPS -0.2 ML- 2-4 TIMES DAILY TOPICALLY
     Route: 061
     Dates: start: 20080712, end: 20080714
  3. EPIDRIN [Concomitant]

REACTIONS (8)
  - ANGIOEDEMA [None]
  - ERYTHEMA [None]
  - EYE INFLAMMATION [None]
  - EYE PRURITUS [None]
  - OCULAR HYPERAEMIA [None]
  - PRURITUS [None]
  - SIMILAR REACTION ON PREVIOUS EXPOSURE TO DRUG [None]
  - SKIN INFLAMMATION [None]
